FAERS Safety Report 7541239-6 (Version None)
Quarter: 2011Q2

REPORT INFORMATION
  Report Type: 
  Country: None (occurrence: None)
  Receive Date: 20110610
  Receipt Date: 20110602
  Transmission Date: 20111010
  Serious: Yes (Other)
  Sender: FDA-Public Use
  Company Number: JP-MERCK-1106USA00544

PATIENT

DRUGS (2)
  1. VALPROIC ACID [Suspect]
     Dosage: DAILY DOSAGE UNKNOWN
     Route: 048
  2. SINEMET [Suspect]
     Dosage: DAILY DOSAGE UNKNOWN
     Route: 048

REACTIONS (1)
  - RHABDOMYOLYSIS [None]
